FAERS Safety Report 25948875 (Version 2)
Quarter: 2025Q4

REPORT INFORMATION
  Report Type: Spontaneous
  Country: NC (occurrence: NC)
  Receive Date: 20251022
  Receipt Date: 20251107
  Transmission Date: 20260118
  Serious: Yes (Hospitalization, Disabling)
  Sender: FRESENIUS KABI
  Company Number: NC-FreseniusKabi-FK202514109

PATIENT
  Age: 43 Year
  Sex: Female
  Weight: 48 kg

DRUGS (7)
  1. PEMETREXED [Suspect]
     Active Substance: PEMETREXED
     Indication: Lung adenocarcinoma
     Route: 042
     Dates: start: 20250611, end: 20250813
  2. PEMETREXED DISODIUM [Suspect]
     Active Substance: PEMETREXED DISODIUM
     Indication: Lung adenocarcinoma
     Route: 042
     Dates: start: 20240919, end: 20241221
  3. PEMETREXED DISODIUM [Suspect]
     Active Substance: PEMETREXED DISODIUM
     Route: 042
     Dates: start: 20250116, end: 20250521
  4. CARBOPLATIN [Concomitant]
     Active Substance: CARBOPLATIN
     Indication: Lung adenocarcinoma
     Dosage: AUC5
     Route: 042
     Dates: start: 20240919, end: 20241212
  5. CARBOPLATIN [Concomitant]
     Active Substance: CARBOPLATIN
     Dosage: AUC 5
     Route: 042
     Dates: end: 20250813
  6. PEMBROLIZUMAB [Concomitant]
     Active Substance: PEMBROLIZUMAB
     Indication: Lung adenocarcinoma
     Dates: start: 20250116
  7. PEMBROLIZUMAB [Concomitant]
     Active Substance: PEMBROLIZUMAB
     Route: 042
     Dates: start: 20240919, end: 20241212

REACTIONS (2)
  - Renal tubular necrosis [Not Recovered/Not Resolved]
  - Renal impairment [Not Recovered/Not Resolved]

NARRATIVE: CASE EVENT DATE: 20250813
